FAERS Safety Report 20560539 (Version 1)
Quarter: 2022Q1

REPORT INFORMATION
  Report Type: Spontaneous
  Country: US (occurrence: US)
  Receive Date: 20220307
  Receipt Date: 20220307
  Transmission Date: 20220423
  Serious: Yes (Hospitalization, Other)
  Sender: FDA-Public Use
  Company Number: US-ORG100016242-2022000314

PATIENT

DRUGS (6)
  1. EXPAREL [Suspect]
     Active Substance: BUPIVACAINE
     Route: 065
  2. BUPIVACAINE [Suspect]
     Active Substance: BUPIVACAINE
     Route: 065
  3. SODIUM CHLORIDE [Concomitant]
     Active Substance: SODIUM CHLORIDE
     Route: 065
  4. ACETAMINOPHEN [Concomitant]
     Active Substance: ACETAMINOPHEN
     Dosage: NOT PROVIDED
     Route: 048
  5. ACETAMINOPHEN [Concomitant]
     Active Substance: ACETAMINOPHEN
     Dosage: NOT PROVIDED
     Route: 042
  6. KETOROLAC [Concomitant]
     Active Substance: KETOROLAC TROMETHAMINE
     Dosage: NOT PROVIDED
     Route: 042

REACTIONS (10)
  - Ileus [Unknown]
  - Acute kidney injury [Unknown]
  - Hospitalisation [Unknown]
  - Surgery [Unknown]
  - Embolism venous [Unknown]
  - Urinary retention [Unknown]
  - Post procedural complication [Unknown]
  - Transfusion [Unknown]
  - Hypotension [Unknown]
  - Dizziness [Unknown]
